FAERS Safety Report 4777317-4 (Version None)
Quarter: 2005Q3

REPORT INFORMATION
  Report Type: 
  Country: None (occurrence: None)
  Receive Date: 20050922
  Receipt Date: 20050922
  Transmission Date: 20060218
  Serious: Yes (Hospitalization)
  Sender: FDA-Public Use
  Company Number: None

PATIENT
  Sex: Male

DRUGS (8)
  1. HYDROCHLOROTHIAZIDE [Suspect]
     Indication: HYPERTENSION
     Dosage: 50 MG  DAILY   PO
     Route: 048
     Dates: start: 20050627, end: 20050718
  2. OLANZAPINE [Concomitant]
  3. ASPIRIN [Concomitant]
  4. LISINOPRIL [Concomitant]
  5. ALBUTEROL [Concomitant]
  6. FORMOTEROL [Concomitant]
  7. FLUNISOLIDE [Concomitant]
  8. FINASTERIDE [Concomitant]

REACTIONS (3)
  - CONFUSIONAL STATE [None]
  - FALL [None]
  - HYPONATRAEMIA [None]
